FAERS Safety Report 20166347 (Version 1)
Quarter: 2021Q4

REPORT INFORMATION
  Report Type: Spontaneous
  Country: None (occurrence: US)
  Receive Date: 20211209
  Receipt Date: 20211209
  Transmission Date: 20220303
  Serious: No
  Sender: FDA-Public Use
  Company Number: US-Matrixx Initiatives, Inc.-2122850

PATIENT
  Age: 25 Year
  Sex: Female
  Weight: 72.727 kg

DRUGS (1)
  1. ZICAM EXTREME CONGESTION RELIEF (OXYMETAZOLINE HYDROCHLORIDE) [Suspect]
     Active Substance: OXYMETAZOLINE HYDROCHLORIDE
     Indication: Nasopharyngitis
     Route: 045
     Dates: start: 20211206, end: 20211207

REACTIONS (1)
  - Anosmia [None]
